FAERS Safety Report 16567149 (Version 1)
Quarter: 2019Q3

REPORT INFORMATION
  Report Type: Spontaneous
  Country: GB (occurrence: GB)
  Receive Date: 20190712
  Receipt Date: 20190712
  Transmission Date: 20191004
  Serious: Yes (Other)
  Sender: FDA-Public Use
  Company Number: GB-TEVA-2019-GB-1075495

PATIENT
  Age: 59 Year
  Sex: Male
  Weight: 96 kg

DRUGS (3)
  1. MESALAZINE [Suspect]
     Active Substance: MESALAMINE
     Dosage: 3200MG
     Route: 048
     Dates: start: 20161011, end: 20180517
  2. MESALAZINE [Suspect]
     Active Substance: MESALAMINE
     Route: 048
     Dates: start: 20161011, end: 20181118
  3. MESALAZINE [Suspect]
     Active Substance: MESALAMINE
     Indication: COLITIS ULCERATIVE
     Dosage: 4800MG
     Route: 048
     Dates: start: 20160518, end: 20181118

REACTIONS (9)
  - Fatigue [Unknown]
  - Arthralgia [Unknown]
  - Polycythaemia [Unknown]
  - Colitis ulcerative [Unknown]
  - Erythema [Unknown]
  - Thrombocytosis [Unknown]
  - Abnormal loss of weight [Unknown]
  - Chills [Unknown]
  - Gout [Unknown]

NARRATIVE: CASE EVENT DATE: 20190101
